FAERS Safety Report 19866396 (Version 8)
Quarter: 2022Q2

REPORT INFORMATION
  Report Type: Report from Study
  Country: JP (occurrence: JP)
  Receive Date: 20210922
  Receipt Date: 20220524
  Transmission Date: 20220721
  Serious: Yes (Hospitalization, Other)
  Sender: FDA-Public Use
  Company Number: JP-BRISTOL-MYERS SQUIBB COMPANY-BMS-2021-095519

PATIENT
  Age: 79 Year
  Sex: Male
  Weight: 61.7 kg

DRUGS (25)
  1. NIVOLUMAB [Suspect]
     Active Substance: NIVOLUMAB
     Indication: Gastric cancer recurrent
     Dosage: 360 MILLIGRAM, Q3WK
     Route: 041
     Dates: start: 20210908
  2. ERIBULIN [Suspect]
     Active Substance: ERIBULIN
     Indication: Gastric cancer recurrent
     Dosage: 2.1 MG/M2 (3.53MG), Q3W
     Route: 042
     Dates: start: 20210908, end: 20210908
  3. ERIBULIN [Suspect]
     Active Substance: ERIBULIN
     Dosage: 1.7 MG/M2 (2.86MG), Q3W
     Route: 042
     Dates: start: 20210929
  4. ERIBULIN [Suspect]
     Active Substance: ERIBULIN
     Dosage: 1.1 MG/M2 (1.85MG), Q3W
     Route: 042
     Dates: start: 20211101, end: 20220214
  5. ERIBULIN MESYLATE [Suspect]
     Active Substance: ERIBULIN MESYLATE
     Indication: Gastric cancer recurrent
     Dosage: 2.1 MG/M2 (3.53MG), Q3W
     Route: 042
     Dates: start: 20210908, end: 20210908
  6. ERIBULIN MESYLATE [Suspect]
     Active Substance: ERIBULIN MESYLATE
     Dosage: 1.7 MG/M2 (2.86MG), Q3W CYCLE 2, DAY 1
     Route: 042
     Dates: start: 20210929, end: 20210929
  7. LOPERAMIDE HYDROCHLORIDE [Concomitant]
     Active Substance: LOPERAMIDE HYDROCHLORIDE
     Indication: Prophylaxis against diarrhoea
     Dosage: 2 MG/TIME, PRN
     Route: 048
     Dates: start: 20220112
  8. HERBALS [Concomitant]
     Active Substance: HERBALS
     Indication: Constipation
     Dosage: 5 G, Q8H
     Route: 048
     Dates: start: 20200617
  9. MAGNESIUM OXIDE [Concomitant]
     Active Substance: MAGNESIUM OXIDE
     Indication: Constipation
     Dosage: 660 MG, Q8H
     Route: 048
     Dates: start: 20200617
  10. MAGNESIUM OXIDE [Concomitant]
     Active Substance: MAGNESIUM OXIDE
     Dosage: 660 MG/TIME, PRN
     Route: 048
     Dates: start: 20211011
  11. CALONAL [Concomitant]
     Active Substance: ACETAMINOPHEN
     Indication: Pyrexia
     Dosage: 400 MG, PRN
     Route: 048
     Dates: start: 20210909
  12. CALONAL [Concomitant]
     Active Substance: ACETAMINOPHEN
     Indication: Prophylaxis
     Dosage: 400 MG, Q6H
     Route: 048
     Dates: start: 20211109
  13. LEVOFLOXACIN HEMIHYDRATE [Concomitant]
     Active Substance: LEVOFLOXACIN
     Indication: Infection prophylaxis
     Dosage: 500 MG, EVERYDAY
     Route: 048
     Dates: start: 20210909, end: 20210914
  14. LYRICA [Concomitant]
     Active Substance: PREGABALIN
     Indication: Neuropathy peripheral
     Dosage: 150 MG, EVERYDAY
     Route: 048
     Dates: start: 20210916
  15. LYRICA [Concomitant]
     Active Substance: PREGABALIN
     Indication: Peripheral sensory neuropathy
     Dosage: 150 MG, Q12H
     Route: 048
     Dates: start: 20211021
  16. DEXTROMETHORPHAN HYDROBROMIDE [Concomitant]
     Active Substance: DEXTROMETHORPHAN HYDROBROMIDE
     Indication: Cough
     Dosage: 30 MG, Q8H
     Route: 048
     Dates: start: 20211010
  17. ACETAMINOPHEN [Concomitant]
     Active Substance: ACETAMINOPHEN
     Indication: Prophylaxis
     Dosage: 1000 MG, Q6H
     Route: 042
     Dates: start: 20211007
  18. PIPERACILLIN SODIUM\TAZOBACTAM SODIUM [Concomitant]
     Active Substance: PIPERACILLIN SODIUM\TAZOBACTAM SODIUM
     Indication: Pneumonia aspiration
     Dosage: 2.25 G, Q6H
     Route: 042
     Dates: start: 20211006
  19. PRIMPERAN [Concomitant]
     Active Substance: METOCLOPRAMIDE HYDROCHLORIDE
     Indication: Vomiting
     Dosage: 10 MG, PRN
     Route: 042
     Dates: start: 20211010
  20. HALOPERIDOL [Concomitant]
     Active Substance: HALOPERIDOL
     Indication: Restlessness
     Dosage: 5 MG, PRN
     Route: 042
     Dates: start: 20211010
  21. FILGRASTIM [Concomitant]
     Active Substance: FILGRASTIM
     Indication: Prophylaxis
     Dosage: 150 UG, EVERYDAY
     Route: 058
     Dates: start: 20211006
  22. OXYGEN [Concomitant]
     Active Substance: OXYGEN
     Indication: Pneumonia aspiration
     Dosage: 3 L/H, SUSTAINED
     Route: 045
     Dates: start: 20211006
  23. URSODIOL [Concomitant]
     Active Substance: URSODIOL
     Indication: Prophylaxis
     Dosage: 100 MG, Q8H
     Route: 048
     Dates: start: 20220214
  24. LASIX [Concomitant]
     Active Substance: FUROSEMIDE
     Indication: Oedema peripheral
     Dosage: 20 MG, EVERYDAY
     Route: 048
     Dates: start: 20211213
  25. FERROUS FUMARATE [Concomitant]
     Active Substance: FERROUS FUMARATE
     Indication: Haematochezia
     Dosage: 100 MG, EVERYDAY
     Route: 048
     Dates: start: 20220314

REACTIONS (4)
  - Mucosal inflammation [Recovering/Resolving]
  - Intestinal obstruction [Recovered/Resolved]
  - Gastrointestinal haemorrhage [Recovering/Resolving]
  - Decreased appetite [Recovered/Resolved]

NARRATIVE: CASE EVENT DATE: 20210915
